FAERS Safety Report 9561099 (Version 1)
Quarter: 2013Q3

REPORT INFORMATION
  Report Type: Spontaneous
  Country: BR (occurrence: BR)
  Receive Date: 20130927
  Receipt Date: 20130927
  Transmission Date: 20140515
  Serious: Yes (Other)
  Sender: FDA-Public Use
  Company Number: BR-JNJFOC-20130909841

PATIENT
  Age: 61 Year
  Sex: Female
  Weight: 60 kg

DRUGS (4)
  1. TYLEX [Suspect]
     Route: 065
  2. TYLEX [Suspect]
     Indication: PAIN
     Route: 065
  3. PANTOPRAZOLE [Concomitant]
     Indication: GASTRITIS
     Route: 065
  4. LOTAR [Concomitant]
     Indication: HYPERTENSION
     Route: 065

REACTIONS (4)
  - Morbid thoughts [Unknown]
  - Pallor [Recovered/Resolved]
  - Cold sweat [Recovered/Resolved]
  - Abdominal pain upper [Recovered/Resolved]
